FAERS Safety Report 5146223-8 (Version None)
Quarter: 2006Q4

REPORT INFORMATION
  Report Type: 
  Country: None (occurrence: None)
  Receive Date: 20061106
  Receipt Date: 20061106
  Transmission Date: 20070319
  Serious: Yes (Disabling)
  Sender: FDA-Public Use
  Company Number: None

PATIENT
  Age: 56 Year
  Sex: Female
  Weight: 77.1115 kg

DRUGS (1)
  1. LIPITOR [Suspect]
     Indication: BLOOD CHOLESTEROL INCREASED
     Dosage: 20 MG. ONCE DAILY PO
     Route: 048
     Dates: start: 20060422, end: 20060831

REACTIONS (15)
  - AMNESIA [None]
  - ANGER [None]
  - ANXIETY [None]
  - COGNITIVE DISORDER [None]
  - DISORIENTATION [None]
  - DYSGRAPHIA [None]
  - DYSPNOEA [None]
  - FEAR OF DEATH [None]
  - HYPERHIDROSIS [None]
  - IMPAIRED DRIVING ABILITY [None]
  - METABOLIC DISORDER [None]
  - MYOPATHY [None]
  - NEUROPATHY [None]
  - SOCIAL FEAR [None]
  - SUICIDAL IDEATION [None]
